FAERS Safety Report 19794143 (Version 2)
Quarter: 2021Q3

REPORT INFORMATION
  Report Type: Spontaneous
  Country: US (occurrence: US)
  Receive Date: 20210906
  Receipt Date: 20210920
  Transmission Date: 20211014
  Serious: Yes (Hospitalization, Other)
  Sender: FDA-Public Use
  Company Number: US-PFIZER INC-2021846770

PATIENT
  Age: 32 Year
  Sex: Female

DRUGS (1)
  1. XELJANZ [Suspect]
     Active Substance: TOFACITINIB CITRATE
     Indication: HIDRADENITIS
     Dosage: 5 MG

REACTIONS (6)
  - Pneumonia bacterial [Unknown]
  - Lung disorder [Unknown]
  - Pneumonia fungal [Unknown]
  - Pneumonia viral [Unknown]
  - Off label use [Unknown]
  - Pulmonary fibrosis [Unknown]
